FAERS Safety Report 24266667 (Version 2)
Quarter: 2024Q3

REPORT INFORMATION
  Report Type: Report from Study
  Country: US (occurrence: US)
  Receive Date: 20240830
  Receipt Date: 20240927
  Transmission Date: 20241017
  Serious: Yes (Other)
  Sender: pharmaAND
  Company Number: US-Pharmaand-2024000793

PATIENT
  Sex: Female

DRUGS (2)
  1. RUBRACA [Suspect]
     Active Substance: RUCAPARIB CAMSYLATE
     Indication: Ovarian cancer
     Dosage: 300MG BID
     Route: 048
     Dates: start: 201709
  2. RUBRACA [Suspect]
     Active Substance: RUCAPARIB CAMSYLATE
     Dosage: 300MG BID
     Route: 048
     Dates: start: 202401

REACTIONS (4)
  - Cardiac failure [Unknown]
  - Oedema [Unknown]
  - Functional gastrointestinal disorder [Unknown]
  - Product dose omission issue [Recovered/Resolved]
